FAERS Safety Report 6183307-X (Version None)
Quarter: 2009Q2

REPORT INFORMATION
  Report Type: 
  Country: None (occurrence: None)
  Receive Date: 20090507
  Receipt Date: 20090428
  Transmission Date: 20091009
  Serious: Yes (Death, Other)
  Sender: FDA-Public Use
  Company Number: FR-BAXTER-2009BH002683

PATIENT
  Age: 81 Year
  Sex: Male

DRUGS (3)
  1. DIANEAL [Suspect]
     Indication: PERITONEAL DIALYSIS
     Route: 033
     Dates: start: 20000321
  2. DIANEAL [Suspect]
     Route: 033
     Dates: end: 20061124
  3. EXTRANEAL [Suspect]
     Indication: PERITONEAL DIALYSIS
     Route: 033
     Dates: start: 20040220, end: 20061124

REACTIONS (4)
  - CACHEXIA [None]
  - CONSTIPATION [None]
  - PERITONEAL MEMBRANE FAILURE [None]
  - PERITONITIS SCLEROSING [None]
